FAERS Safety Report 6857361-3 (Version None)
Quarter: 2010Q3

REPORT INFORMATION
  Report Type: 
  Country: None (occurrence: None)
  Receive Date: 20100719
  Receipt Date: 20100707
  Transmission Date: 20110219
  Serious: Yes (Other)
  Sender: FDA-Public Use
  Company Number: CH-PFIZER INC-2010084521

PATIENT
  Age: 74 Year
  Sex: Female

DRUGS (3)
  1. TOVIAZ [Suspect]
  2. ESTROGEN NOS [Concomitant]
  3. CIMICIFUGA ROOT [Concomitant]

REACTIONS (2)
  - DEPRESSION [None]
  - HAEMATOCHEZIA [None]
